FAERS Safety Report 8443743-5 (Version None)
Quarter: 2012Q2

REPORT INFORMATION
  Report Type: 
  Country: None (occurrence: None)
  Receive Date: 20120618
  Receipt Date: 20120611
  Transmission Date: 20120825
  Serious: Yes (Hospitalization, Congenital Anomaly)
  Sender: FDA-Public Use
  Company Number: DE-ELI_LILLY_AND_COMPANY-DE201206003004

PATIENT
  Sex: Female

DRUGS (10)
  1. DIAZEPAM [Concomitant]
     Dosage: UNK, PRN
     Route: 064
  2. MIRTAZAPINE [Concomitant]
     Route: 064
  3. VENLAFAXINE HCL [Concomitant]
     Route: 064
  4. DIAZEPAM [Concomitant]
     Dosage: UNK, PRN
     Route: 064
  5. VENLAFAXINE HCL [Concomitant]
     Route: 064
  6. ZYPREXA [Suspect]
     Route: 064
  7. MIRTAZAPINE [Concomitant]
     Route: 064
  8. DIMENHYDRINATE [Concomitant]
     Route: 064
  9. ZYPREXA [Suspect]
     Route: 064
  10. DIMENHYDRINATE [Concomitant]
     Route: 064

REACTIONS (9)
  - CRYING [None]
  - PREMATURE BABY [None]
  - RESTLESSNESS [None]
  - OPISTHOTONUS [None]
  - DYSKINESIA NEONATAL [None]
  - CONGENITAL CARDIOVASCULAR ANOMALY [None]
  - TORTICOLLIS [None]
  - FEEDING DISORDER NEONATAL [None]
  - FOETAL EXPOSURE DURING PREGNANCY [None]
